FAERS Safety Report 11414564 (Version 3)
Quarter: 2015Q4

REPORT INFORMATION
  Report Type: Report from Study
  Country: BR (occurrence: BR)
  Receive Date: 20150825
  Receipt Date: 20151110
  Transmission Date: 20160304
  Serious: Yes (Death, Hospitalization)
  Sender: FDA-Public Use
  Company Number: BR-ROCHE-1542399

PATIENT
  Sex: Female
  Weight: 60 kg

DRUGS (9)
  1. VITAMIN C [Concomitant]
     Active Substance: ASCORBIC ACID
  2. METICORTEN [Concomitant]
     Active Substance: PREDNISONE
  3. ASPIRIN. [Concomitant]
     Active Substance: ASPIRIN
  4. MABTHERA [Suspect]
     Active Substance: RITUXIMAB
     Indication: RHEUMATOID ARTHRITIS
     Dosage: 100 MG/10 ML 2 VIALS?SUBSEQUENT DOSES ON 23-AUG-2013, 25-FEB-2014, 11-MAR-2014, 16-SEP-2014 AND 30-S
     Route: 042
     Dates: start: 20130809, end: 20150722
  5. CARDIZEM [Concomitant]
     Active Substance: DILTIAZEM HYDROCHLORIDE
  6. GABAPENTIN. [Concomitant]
     Active Substance: GABAPENTIN
  7. LORAX [Concomitant]
     Active Substance: LORAZEPAM
  8. LEXAPRO [Concomitant]
     Active Substance: ESCITALOPRAM OXALATE
  9. OSCAL [Concomitant]
     Active Substance: CALCIUM CARBONATE

REACTIONS (6)
  - Septic shock [Fatal]
  - Erysipelas [Not Recovered/Not Resolved]
  - Skin ulcer [Not Recovered/Not Resolved]
  - Skin infection [Fatal]
  - Sepsis [Fatal]
  - Multi-organ failure [Fatal]
